FAERS Safety Report 8783772 (Version 2)
Quarter: 2012Q4

REPORT INFORMATION
  Report Type: 
  Country: US (occurrence: US)
  Receive Date: 20120913
  Receipt Date: 20121004
  Transmission Date: 20130627
  Serious: Yes (Other)
  Sender: FDA-Public Use
  Company Number: US-ALLERGAN-1212370US

PATIENT
  Age: 67 Year
  Sex: Male

DRUGS (1)
  1. LUMIGAN [Suspect]
     Indication: IOP INCREASED
     Dosage: 2 Gtt, qhs
     Route: 047
     Dates: start: 2010

REACTIONS (9)
  - Retinal haemorrhage [Unknown]
  - Retinal vein occlusion [Unknown]
  - Macular fibrosis [Unknown]
  - Visual acuity reduced [Unknown]
  - Macular oedema [Recovered/Resolved]
  - Eye haemorrhage [Unknown]
  - Visual acuity reduced [Recovering/Resolving]
  - Vision blurred [Unknown]
  - Vasodilatation [Unknown]
